FAERS Safety Report 11230545 (Version 1)
Quarter: 2015Q2

REPORT INFORMATION
  Report Type: Spontaneous
  Country: US (occurrence: None)
  Receive Date: 20150629
  Receipt Date: 20150629
  Transmission Date: 20150821
  Serious: Yes (Hospitalization)
  Sender: FDA-Public Use
  Company Number: None

PATIENT
  Age: 44 Year
  Sex: Male
  Weight: 63.05 kg

DRUGS (1)
  1. OMEPRAZOLE. [Suspect]
     Active Substance: OMEPRAZOLE
     Indication: DYSPEPSIA
     Dosage: 20MG 1 PILL EVERY 24HRS ONCE DAILY TAKEN BY MOUTH
     Route: 048

REACTIONS (3)
  - Unevaluable event [None]
  - Chest pain [None]
  - Mouth haemorrhage [None]

NARRATIVE: CASE EVENT DATE: 20150607
